FAERS Safety Report 5151499-7 (Version None)
Quarter: 2006Q4

REPORT INFORMATION
  Report Type: 
  Country: None (occurrence: None)
  Receive Date: 20061114
  Receipt Date: 20061114
  Transmission Date: 20070319
  Serious: Yes (Life-Threatening, Hospitalization)
  Sender: FDA-Public Use
  Company Number: None

PATIENT
  Age: 55 Year
  Sex: Male
  Weight: 156.491 kg

DRUGS (2)
  1. ACETAMINOPHEN   500 MG     ^EQUATE^ -WAL-MART- [Suspect]
     Indication: ARTHRALGIA
     Dosage: 1000 MG    2 TIMES PER DAY PO  (DURATION: THE LAST 3 OR 4 MONTHS)
     Route: 048
  2. ACETAMINOPHEN   500 MG     ^EQUATE^ -WAL-MART- [Suspect]
     Indication: JOINT SWELLING
     Dosage: 1000 MG    2 TIMES PER DAY PO  (DURATION: THE LAST 3 OR 4 MONTHS)
     Route: 048

REACTIONS (4)
  - INTESTINAL PERFORATION [None]
  - LOSS OF EMPLOYMENT [None]
  - PHARMACEUTICAL PRODUCT COMPLAINT [None]
  - POOR QUALITY DRUG ADMINISTERED [None]
